FAERS Safety Report 5524414-1 (Version None)
Quarter: 2007Q4

REPORT INFORMATION
  Report Type: 
  Country: None (occurrence: None)
  Receive Date: 20071121
  Receipt Date: 20071114
  Transmission Date: 20080405
  Serious: Yes (Other)
  Sender: FDA-Public Use
  Company Number: IE-PFIZER INC-2007096881

PATIENT
  Age: 18 Year
  Sex: Male

DRUGS (1)
  1. LUSTRAL [Suspect]

REACTIONS (2)
  - SENSATION OF FOREIGN BODY [None]
  - THROAT TIGHTNESS [None]
